FAERS Safety Report 23481952 (Version 1)
Quarter: 2024Q1

REPORT INFORMATION
  Report Type: Spontaneous
  Country: CL (occurrence: CL)
  Receive Date: 20240205
  Receipt Date: 20240205
  Transmission Date: 20240410
  Serious: Yes (Other)
  Sender: FDA-Public Use
  Company Number: CL-STERISCIENCE B.V.-2024-ST-000067

PATIENT
  Weight: 1.31 kg

DRUGS (9)
  1. MEROPENEM [Suspect]
     Active Substance: MEROPENEM
     Indication: Product used for unknown indication
     Dosage: MOTHER DOSE: 1 GRAM, Q12HR (BID) FOR 2 DAYS
     Route: 064
  2. MEROPENEM [Suspect]
     Active Substance: MEROPENEM
     Dosage: MOTHER DOSE: 1 GRAM, Q24HR (QD) FOR 6 DAYS
     Route: 064
  3. CEFAZOLIN [Suspect]
     Active Substance: CEFAZOLIN
     Indication: Product used for unknown indication
     Dosage: UNK
     Route: 064
  4. BETAMETHASONE [Suspect]
     Active Substance: BETAMETHASONE\BETAMETHASONE DIPROPIONATE
     Indication: Product used for unknown indication
     Dosage: UNK
     Route: 064
  5. NIFEDIPINE [Suspect]
     Active Substance: NIFEDIPINE
     Indication: Product used for unknown indication
     Dosage: UNK
     Route: 064
  6. MAGNESIUM SULFATE [Suspect]
     Active Substance: MAGNESIUM SULFATE\MAGNESIUM SULFATE HEPTAHYDRATE
     Indication: Product used for unknown indication
     Dosage: UNK
     Route: 064
  7. NOREPINEPHRINE [Suspect]
     Active Substance: NOREPINEPHRINE
     Indication: Product used for unknown indication
     Dosage: MOTHER DOSE: UPTO 1.5 MCG/KG/MIN
     Route: 064
  8. HYDROCORTISONE [Suspect]
     Active Substance: HYDROCORTISONE
     Indication: Product used for unknown indication
     Dosage: MOTHER DOSE: 100 MILLIGRAM
     Route: 064
  9. HYDROCORTISONE [Suspect]
     Active Substance: HYDROCORTISONE
     Dosage: MOTHER DOSE: 50 MILLIGRAM, Q8H,EVERY EIGHT HOURS FOR 7 DAYS
     Route: 064

REACTIONS (6)
  - Neonatal asphyxia [Unknown]
  - Bronchopulmonary dysplasia [Unknown]
  - Hypoxic-ischaemic encephalopathy [Unknown]
  - Premature baby [Unknown]
  - Low birth weight baby [Unknown]
  - Foetal exposure during pregnancy [Unknown]
